FAERS Safety Report 16029849 (Version 3)
Quarter: 2019Q4

REPORT INFORMATION
  Report Type: Spontaneous
  Country: US (occurrence: US)
  Receive Date: 20190304
  Receipt Date: 20191031
  Transmission Date: 20200122
  Serious: Yes (Hospitalization, Other)
  Sender: FDA-Public Use
  Company Number: US-MYLANLABS-2019M1018044

PATIENT
  Age: 63 Year
  Sex: Female
  Weight: 45 kg

DRUGS (6)
  1. DOCUSATE SODIUM. [Concomitant]
     Active Substance: DOCUSATE SODIUM
     Dosage: TRIED 1 DAILY, THEN INCREASED TO 2 DAILY THE WEEK BEFORE WENT INTO HOSPITAL
  2. ATROPINE/DIPHENOXYLATE [Suspect]
     Active Substance: ATROPINE\DIPHENOXYLATE
     Dosage: HIGHER DOSE
     Route: 048
  3. ATROPINE/DIPHENOXYLATE [Suspect]
     Active Substance: ATROPINE\DIPHENOXYLATE
     Indication: DIARRHOEA
     Dosage: 1 DOSAGE FORM, PRN, EVERY 4-6 HOURS
     Route: 048
     Dates: start: 20170912
  4. DOCUSATE SODIUM. [Concomitant]
     Active Substance: DOCUSATE SODIUM
     Indication: FAECES SOFT
     Dosage: 100 MILLIGRAM, QD
     Dates: start: 201709, end: 20170911
  5. PARACETAMOL [Suspect]
     Active Substance: ACETAMINOPHEN
     Indication: PAIN
     Dosage: 2 DOSAGE FORM, BID, AS NEEDED,PRIOR TO HER SURGERY
  6. PARACETAMOL [Suspect]
     Active Substance: ACETAMINOPHEN
     Indication: ABDOMINAL PAIN

REACTIONS (11)
  - Drug ineffective [Unknown]
  - Product prescribing error [Unknown]
  - Recalled product administered [Unknown]
  - Intestinal obstruction [Recovered/Resolved]
  - Incorrect dose administered [Unknown]
  - Hallucinations, mixed [Unknown]
  - Diarrhoea [Recovered/Resolved]
  - Fatigue [Recovering/Resolving]
  - Vomiting [Recovered/Resolved]
  - Abdominal pain [Recovered/Resolved]
  - Pain [Recovered/Resolved]

NARRATIVE: CASE EVENT DATE: 201706
